FAERS Safety Report 25484838 (Version 1)
Quarter: 2025Q2

REPORT INFORMATION
  Report Type: Spontaneous
  Country: US (occurrence: US)
  Receive Date: 20250626
  Receipt Date: 20250626
  Transmission Date: 20250716
  Serious: Yes (Death, Life-Threatening, Hospitalization, Other)
  Sender: Karo Pharma
  Company Number: US-Karo Pharma-2179448

PATIENT
  Sex: Female

DRUGS (1)
  1. TERBINAFINE [Suspect]
     Active Substance: TERBINAFINE
     Indication: Onychomycosis

REACTIONS (4)
  - Acute hepatic failure [Fatal]
  - Acute kidney injury [Fatal]
  - Drug-induced liver injury [Fatal]
  - Rhabdomyolysis [Fatal]
